FAERS Safety Report 6183119-7 (Version None)
Quarter: 2009Q2

REPORT INFORMATION
  Report Type: 
  Country: None (occurrence: None)
  Receive Date: 20090507
  Receipt Date: 20090429
  Transmission Date: 20091009
  Serious: Yes (Other)
  Sender: FDA-Public Use
  Company Number: PHEH2009US04234

PATIENT
  Sex: Male

DRUGS (2)
  1. EXELON [Suspect]
     Indication: PARKINSON'S DISEASE
     Dosage: 4.6 MG, QD
     Route: 062
     Dates: start: 20090406, end: 20090416
  2. EXELON [Suspect]
     Dosage: 4.6 MG, QD
     Route: 062
     Dates: start: 20090424, end: 20090429

REACTIONS (2)
  - CONFUSIONAL STATE [None]
  - LETHARGY [None]
